FAERS Safety Report 6873595-6 (Version None)
Quarter: 2010Q3

REPORT INFORMATION
  Report Type: 
  Country: None (occurrence: None)
  Receive Date: 20100723
  Receipt Date: 20100719
  Transmission Date: 20110219
  Serious: Yes (Other)
  Sender: FDA-Public Use
  Company Number: US-AMGEN-QUU422308

PATIENT
  Sex: Male

DRUGS (4)
  1. NPLATE [Suspect]
     Indication: IDIOPATHIC THROMBOCYTOPENIC PURPURA
     Dates: start: 20091231, end: 20100510
  2. CORTICOSTEROIDS [Concomitant]
     Dates: start: 20100121
  3. IMMU-G [Concomitant]
     Dates: start: 20100114
  4. RITUXIMAB [Concomitant]
     Dates: start: 20100119

REACTIONS (2)
  - AMYLOIDOSIS [None]
  - DRUG INEFFECTIVE [None]
